FAERS Safety Report 13421709 (Version 2)
Quarter: 2017Q2

REPORT INFORMATION
  Report Type: Spontaneous
  Country: US (occurrence: US)
  Receive Date: 20170410
  Receipt Date: 20170418
  Transmission Date: 20170830
  Serious: Yes (Life-Threatening, Hospitalization, Other)
  Sender: FDA-Public Use
  Company Number: US-DRREDDYS-USA/USA/17/0088621

PATIENT
  Age: 23 Year
  Sex: Male

DRUGS (8)
  1. CODEINE [Suspect]
     Active Substance: CODEINE
     Indication: PRODUCT USED FOR UNKNOWN INDICATION
     Route: 065
  2. GALANTAMINE HYDROBROMIDE. [Suspect]
     Active Substance: GALANTAMINE HYDROBROMIDE
     Indication: PRODUCT USED FOR UNKNOWN INDICATION
     Route: 065
  3. OXYCODONE [Suspect]
     Active Substance: OXYCODONE
     Indication: PRODUCT USED FOR UNKNOWN INDICATION
     Route: 065
  4. DIPHENHYDRAMINE. [Concomitant]
     Active Substance: DIPHENHYDRAMINE
     Indication: PRODUCT USED FOR UNKNOWN INDICATION
     Route: 065
  5. FENTANYL. [Suspect]
     Active Substance: FENTANYL
     Indication: PRODUCT USED FOR UNKNOWN INDICATION
     Route: 065
  6. NALOXONE [Suspect]
     Active Substance: NALOXONE
     Indication: PRODUCT USED FOR UNKNOWN INDICATION
     Route: 042
  7. COCAINE [Concomitant]
     Active Substance: COCAINE
     Indication: PRODUCT USED FOR UNKNOWN INDICATION
     Route: 065
  8. QUININE [Concomitant]
     Active Substance: QUININE
     Indication: PRODUCT USED FOR UNKNOWN INDICATION
     Route: 065

REACTIONS (9)
  - Overdose [Unknown]
  - Renal failure [Unknown]
  - Compartment syndrome [Unknown]
  - Increased bronchial secretion [Unknown]
  - Unresponsive to stimuli [Unknown]
  - Hyperhidrosis [Unknown]
  - Toxicity to various agents [Unknown]
  - Miosis [Unknown]
  - Sinus tachycardia [Unknown]
